FAERS Safety Report 11661428 (Version 1)
Quarter: 2015Q4

REPORT INFORMATION
  Report Type: Spontaneous
  Country: US (occurrence: US)
  Receive Date: 20151026
  Receipt Date: 20151026
  Transmission Date: 20160304
  Serious: No
  Sender: FDA-Public Use
  Company Number: US-APOTEX-2015AP010391

PATIENT
  Sex: Male

DRUGS (1)
  1. OLOPATADINE HYDROCHLORIDE NASAL [Suspect]
     Active Substance: OLOPATADINE HYDROCHLORIDE
     Indication: PRODUCT USED FOR UNKNOWN INDICATION
     Dosage: 665 MCG/SPRAY
     Route: 065

REACTIONS (4)
  - Product substitution issue [Unknown]
  - Product physical issue [Unknown]
  - Incorrect dose administered by device [Unknown]
  - Drug ineffective [Unknown]
